FAERS Safety Report 12405483 (Version 1)
Quarter: 2016Q2

REPORT INFORMATION
  Report Type: Spontaneous
  Country: GB (occurrence: GB)
  Receive Date: 20160525
  Receipt Date: 20160525
  Transmission Date: 20160815
  Serious: Yes (Other)
  Sender: FDA-Public Use
  Company Number: PHHY2016GB069584

PATIENT
  Sex: Female

DRUGS (4)
  1. SOLPADOL                           /00116401/ [Concomitant]
     Active Substance: ACETAMINOPHEN\CODEINE PHOSPHATE
     Indication: PAIN
     Dosage: 2
     Route: 065
     Dates: start: 200503
  2. LODINE [Concomitant]
     Active Substance: ETODOLAC
     Indication: PAIN
     Route: 065
  3. METHOTREXATE [Suspect]
     Active Substance: METHOTREXATE
     Indication: RHEUMATOID ARTHRITIS
     Dosage: 2.5 MG 2 TABLETS IN FIRST WEEK TITRATED UPTO 5 TABLETS WEEKLY
     Route: 065
  4. DEPO-MEDRONE [Concomitant]
     Active Substance: METHYLPREDNISOLONE
     Indication: PAIN
     Route: 065

REACTIONS (2)
  - Liver disorder [Unknown]
  - Drug intolerance [Unknown]
